FAERS Safety Report 9296816 (Version 2)
Quarter: 2014Q3

REPORT INFORMATION
  Report Type: Spontaneous
  Country: FR (occurrence: FR)
  Receive Date: 20130517
  Receipt Date: 20140805
  Transmission Date: 20150326
  Serious: Yes (Hospitalization, Other)
  Sender: FDA-Public Use
  Company Number: FR-PFIZER INC-2013149087

PATIENT
  Age: 75 Year
  Sex: Male

DRUGS (8)
  1. KENZEN [Suspect]
     Active Substance: CANDESARTAN
     Dosage: 16 MG, DAILY
     Route: 048
     Dates: start: 2012, end: 20130301
  2. ALDACTAZINE [Suspect]
     Active Substance: ALTHIAZIDE\SPIRONOLACTONE
     Dosage: 1 DF, DAILY
     Route: 048
     Dates: start: 2009, end: 20130301
  3. LEVOTHYROX [Concomitant]
     Active Substance: LEVOTHYROXINE
     Indication: HYPOTHYROIDISM
     Dosage: 25 UG, DAILY
     Dates: start: 20130226
  4. PREVISCAN [Concomitant]
     Active Substance: FLUINDIONE
     Dosage: UNK
     Route: 048
     Dates: end: 20130301
  5. TEMERIT [Concomitant]
     Active Substance: NEBIVOLOL
     Dosage: 1.25 MG, DAILY
     Route: 048
     Dates: start: 2009, end: 20130301
  6. KARDEGIC [Concomitant]
     Active Substance: ASPIRIN LYSINE
     Dosage: 75
  7. TAHOR [Suspect]
     Active Substance: ATORVASTATIN CALCIUM
     Dosage: 40 MG, DAILY
     Route: 048
     Dates: start: 201202, end: 20130301
  8. CORDARONE [Suspect]
     Active Substance: AMIODARONE HYDROCHLORIDE
     Indication: ATRIAL FIBRILLATION
     Dosage: 100 MG DAILY
     Route: 048
     Dates: end: 20130301

REACTIONS (4)
  - Respiratory distress [Recovered/Resolved]
  - Interstitial lung disease [Recovered/Resolved]
  - Renal failure acute [Unknown]
  - Hypoxia [Recovered/Resolved]

NARRATIVE: CASE EVENT DATE: 20130228
